FAERS Safety Report 9840716 (Version 1)
Quarter: 2013Q4

REPORT INFORMATION
  Report Type: Spontaneous
  Country: US (occurrence: None)
  Receive Date: 20131211
  Receipt Date: 20131211
  Transmission Date: 20140711
  Serious: Yes (Other)
  Sender: FDA-Public Use
  Company Number: SPV1-2012-01143

PATIENT
  Sex: 0

DRUGS (1)
  1. VYVANSE [Suspect]

REACTIONS (3)
  - Depression [None]
  - Anxiety [None]
  - Rash [None]
